FAERS Safety Report 5073278-1 (Version None)
Quarter: 2006Q3

REPORT INFORMATION
  Report Type: 
  Country: None (occurrence: None)
  Receive Date: 20060808
  Receipt Date: 20060515
  Transmission Date: 20061208
  Serious: Yes (Death, Life-Threatening, Hospitalization)
  Sender: FDA-Public Use
  Company Number: ZA-BRISTOL-MYERS SQUIBB COMPANY-13377452

PATIENT
  Age: 71 Year
  Sex: Female

DRUGS (4)
  1. CAPECITABINE [Suspect]
     Indication: BREAST CANCER
     Dosage: INTERRUPT: 07MAY06
     Route: 048
     Dates: start: 20060426, end: 20060507
  2. SIMVASTATIN [Concomitant]
     Dates: start: 19940101
  3. ADCO-RETIC [Concomitant]
     Dates: start: 19940101
  4. ATENOLOL [Concomitant]
     Dates: start: 19940101

REACTIONS (6)
  - ATRIAL FIBRILLATION [None]
  - DEHYDRATION [None]
  - DIARRHOEA [None]
  - RENAL FAILURE [None]
  - SEPTIC SHOCK [None]
  - VOMITING [None]
